FAERS Safety Report 7001229-9 (Version None)
Quarter: 2010Q3

REPORT INFORMATION
  Report Type: 
  Country: None (occurrence: None)
  Receive Date: 20100920
  Receipt Date: 20070521
  Transmission Date: 20110219
  Serious: Yes (Hospitalization)
  Sender: FDA-Public Use
  Company Number: US-ASTRAZENECA-2006UW11433

PATIENT
  Age: 45 Year
  Sex: Female
  Weight: 105.2 kg

DRUGS (15)
  1. SEROQUEL [Suspect]
     Indication: BIPOLAR DISORDER
     Dosage: 50 - 200 MG DOSE
     Route: 048
     Dates: start: 19990101
  2. SEROQUEL [Suspect]
     Indication: SCHIZOPHRENIA
     Dosage: 50 - 200 MG DOSE
     Route: 048
     Dates: start: 19990101
  3. SEROQUEL [Suspect]
     Indication: DEPRESSION
     Dosage: 50 - 200 MG DOSE
     Route: 048
     Dates: start: 19990101
  4. SEROQUEL [Suspect]
     Route: 048
     Dates: start: 20030906
  5. SEROQUEL [Suspect]
     Route: 048
     Dates: start: 20030906
  6. SEROQUEL [Suspect]
     Route: 048
     Dates: start: 20030906
  7. ABILIFY [Concomitant]
     Dates: start: 20010101
  8. HALDOL [Concomitant]
     Dates: start: 19760101, end: 20000101
  9. RISPERDAL [Concomitant]
     Indication: MENTAL DISORDER
     Dosage: 2 MG BID - 3 MG BID
     Dates: start: 19961101
  10. RISPERDAL [Concomitant]
     Dates: start: 19980101
  11. ZYPREXA [Concomitant]
     Dates: start: 20000101, end: 20010101
  12. MARIJUANA [Concomitant]
     Dates: start: 19730101, end: 19860101
  13. COCAINE [Concomitant]
     Dates: start: 19860101, end: 20060101
  14. METFORMIN [Concomitant]
     Dosage: 500 MG BID - 500 MG QID
     Route: 048
     Dates: start: 20061014
  15. PREDNISONE [Concomitant]
     Route: 048
     Dates: start: 20061015

REACTIONS (5)
  - CARDIAC FAILURE CONGESTIVE [None]
  - DIABETES MELLITUS [None]
  - HYPERGLYCAEMIA [None]
  - OBESITY [None]
  - TYPE 2 DIABETES MELLITUS [None]
